FAERS Safety Report 10522634 (Version 3)
Quarter: 2014Q4

REPORT INFORMATION
  Report Type: Spontaneous
  Country: US (occurrence: US)
  Receive Date: 20141016
  Receipt Date: 20141113
  Transmission Date: 20150528
  Serious: Yes (Other)
  Sender: FDA-Public Use
  Company Number: US-INCYTE CORPORATION-2014IN003000

PATIENT
  Age: 52 Year
  Sex: Female

DRUGS (10)
  1. LISINOPRIL. [Suspect]
     Active Substance: LISINOPRIL
  2. LEVOTHYROXINE [Suspect]
     Active Substance: LEVOTHYROXINE
  3. RAMIPRIL. [Concomitant]
     Active Substance: RAMIPRIL
  4. JAKAFI [Suspect]
     Active Substance: RUXOLITINIB
     Dosage: 15 MG, BID
     Route: 048
     Dates: start: 20131030
  5. POTASSIUM CHLORIDE. [Concomitant]
     Active Substance: POTASSIUM CHLORIDE
  6. SIMVASTATIN. [Concomitant]
     Active Substance: SIMVASTATIN
  7. CITALOPRAM [Suspect]
     Active Substance: CITALOPRAM HYDROBROMIDE
  8. FUROSEMIDE. [Concomitant]
     Active Substance: FUROSEMIDE
  9. JAKAFI [Suspect]
     Active Substance: RUXOLITINIB
     Indication: MYELOFIBROSIS
     Dosage: 20 MG, BID
     Route: 048
     Dates: start: 201304
  10. OMEPRAZOLE. [Concomitant]
     Active Substance: OMEPRAZOLE

REACTIONS (19)
  - Bradyphrenia [Unknown]
  - Muscular weakness [Unknown]
  - Confusional state [Unknown]
  - Visual impairment [Unknown]
  - Alopecia [Unknown]
  - Inner ear disorder [Unknown]
  - Pruritus [Recovered/Resolved]
  - Memory impairment [Unknown]
  - Fatigue [Unknown]
  - Balance disorder [Unknown]
  - Weight increased [Unknown]
  - Asthenia [Unknown]
  - Dyspnoea [Unknown]
  - Depression [Unknown]
  - Dysarthria [Unknown]
  - Blood count abnormal [Unknown]
  - Abdominal discomfort [Unknown]
  - Mood swings [Unknown]
  - Increased appetite [Unknown]

NARRATIVE: CASE EVENT DATE: 201310
